FAERS Safety Report 25011388 (Version 1)
Quarter: 2025Q1

REPORT INFORMATION
  Report Type: Spontaneous
  Country: US (occurrence: US)
  Receive Date: 20250226
  Receipt Date: 20250226
  Transmission Date: 20250409
  Serious: No
  Sender: ROCHE
  Company Number: US-ROCHE-10000213483

PATIENT
  Age: 34 Year
  Sex: Female

DRUGS (3)
  1. XOLAIR PFS [Suspect]
     Active Substance: OMALIZUMAB
     Indication: Asthma
     Dosage: 2 PREFILLED SYRINGES EQUALS 225 MG EVERY 2 WEEKS
     Route: 058
     Dates: start: 20250204
  2. XOLAIR PFS [Suspect]
     Active Substance: OMALIZUMAB
  3. Flucanozole inhaler [Concomitant]
     Indication: Hypersensitivity
     Route: 045

REACTIONS (2)
  - Injection site reaction [Recovered/Resolved]
  - Peripheral swelling [Recovered/Resolved]

NARRATIVE: CASE EVENT DATE: 20250204
